FAERS Safety Report 6439778-4 (Version None)
Quarter: 2009Q4

REPORT INFORMATION
  Report Type: 
  Country: None (occurrence: None)
  Receive Date: 20091112
  Receipt Date: 20091112
  Transmission Date: 20100525
  Serious: Yes (Hospitalization)
  Sender: FDA-Public Use
  Company Number: None

PATIENT
  Age: 27 Year
  Sex: Male

DRUGS (4)
  1. PROZAC [Suspect]
     Dosage: HOME MED
  2. ASPIRIN [Suspect]
     Dosage: HOME MED
  3. VITAMIN B-12 [Suspect]
     Dosage: HOME MED
  4. ABILIFY [Suspect]
     Dosage: HOME MED

REACTIONS (1)
  - OVERDOSE [None]
